FAERS Safety Report 11729430 (Version 1)
Quarter: 2015Q4

REPORT INFORMATION
  Report Type: Spontaneous
  Country: US (occurrence: US)
  Receive Date: 20151112
  Receipt Date: 20151112
  Transmission Date: 20160304
  Serious: Yes (Other)
  Sender: FDA-Public Use
  Company Number: US-TEIKOKU PHARMA USA, INC.-1044121

PATIENT
  Sex: Female

DRUGS (2)
  1. LIDODERM [Suspect]
     Active Substance: LIDOCAINE
     Indication: INTERVERTEBRAL DISC DEGENERATION
     Route: 061
  2. VOLTAREN [Concomitant]
     Active Substance: DICLOFENAC SODIUM

REACTIONS (6)
  - Cardiac disorder [Unknown]
  - Seizure [Unknown]
  - Pain [Unknown]
  - Arterial rupture [Unknown]
  - Brain injury [Unknown]
  - Headache [Not Recovered/Not Resolved]
